FAERS Safety Report 5698756-3 (Version None)
Quarter: 2008Q2

REPORT INFORMATION
  Report Type: 
  Country: None (occurrence: None)
  Receive Date: 20080403
  Receipt Date: 20080321
  Transmission Date: 20081010
  Serious: Yes (Hospitalization)
  Sender: FDA-Public Use
  Company Number: 2007002546

PATIENT
  Age: 50 Year
  Sex: Male

DRUGS (3)
  1. ERLOTINIB (ERLOTINIB HCL) (TABLET) (ERLOTINIB HCL) [Suspect]
     Indication: PANCREATIC CARCINOMA METASTATIC
     Dosage: (100 MG, QD), ORAL
     Route: 048
     Dates: start: 20071206
  2. BEVACIZUMAB (INJECTION FOR INFUSION) [Suspect]
     Indication: PANCREATIC CARCINOMA METASTATIC
     Dosage: (Q2W), INTRAVENOUS
     Route: 042
     Dates: start: 20051206, end: 20070821
  3. GEMCITABINE [Suspect]
     Indication: PANCREATIC CARCINOMA METASTATIC
     Dosage: (750 MG, QW), INTRAVENOUS
     Route: 042
     Dates: start: 20051206, end: 20070925

REACTIONS (2)
  - DEVICE FAILURE [None]
  - HAEMATOMA [None]
